FAERS Safety Report 4515519-2 (Version None)
Quarter: 2004Q4

REPORT INFORMATION
  Report Type: 
  Country: None (occurrence: None)
  Receive Date: 20041201
  Receipt Date: 20041124
  Transmission Date: 20050328
  Serious: Yes (Hospitalization)
  Sender: FDA-Public Use
  Company Number: ES-ABBOTT-04P-144-0281539-00

PATIENT
  Sex: Male

DRUGS (12)
  1. RITONAVIR SOFT GELATIN CAPSULES [Suspect]
     Indication: HIV INFECTION
     Route: 048
     Dates: start: 20041014, end: 20041027
  2. RITONAVIR SOFT GELATIN CAPSULES [Suspect]
     Dates: start: 20041103, end: 20041109
  3. TIPRANAVIR [Concomitant]
     Indication: HIV INFECTION
     Route: 048
     Dates: start: 20041014, end: 20041027
  4. TIPRANAVIR [Concomitant]
     Dates: start: 20041103, end: 20041109
  5. FUZEON [Concomitant]
     Indication: HIV INFECTION
     Route: 058
     Dates: start: 20041014, end: 20041027
  6. FUZEON [Concomitant]
     Dates: start: 20041103, end: 20041109
  7. DIDANOSINE [Concomitant]
     Indication: HIV INFECTION
     Route: 048
     Dates: start: 20041014, end: 20041027
  8. DIDANOSINE [Concomitant]
     Dates: start: 20041103, end: 20041109
  9. STAVUDINE [Concomitant]
     Indication: HIV INFECTION
     Route: 048
     Dates: start: 20041014, end: 20041027
  10. STAVUDINE [Concomitant]
     Dates: start: 20041103, end: 20041109
  11. LAMIVUDINE [Concomitant]
     Indication: HIV INFECTION
     Route: 048
     Dates: start: 20041014, end: 20041027
  12. LAMIVUDINE [Concomitant]
     Dates: start: 20041103, end: 20041109

REACTIONS (1)
  - HAEMATOMA [None]
